FAERS Safety Report 23081303 (Version 1)
Quarter: 2023Q4

REPORT INFORMATION
  Report Type: Spontaneous
  Country: US (occurrence: US)
  Receive Date: 20231018
  Receipt Date: 20231018
  Transmission Date: 20240110
  Serious: No
  Sender: FDA-Public Use
  Company Number: US-BAUSCHBL-2023BNL009887

PATIENT
  Age: 71 Year
  Sex: Female

DRUGS (2)
  1. VYZULTA [Suspect]
     Active Substance: LATANOPROSTENE BUNOD
     Indication: Glaucoma
     Route: 047
     Dates: start: 20231009, end: 20231010
  2. REFRESH CLASSIC [Concomitant]
     Active Substance: POLYVINYL ALCOHOL\POVIDONE
     Indication: Product used for unknown indication
     Route: 065

REACTIONS (6)
  - Burning sensation [Recovering/Resolving]
  - Headache [Recovered/Resolved]
  - Asthenopia [Recovering/Resolving]
  - Nausea [Recovering/Resolving]
  - Retching [Recovering/Resolving]
  - Vomiting [Recovering/Resolving]

NARRATIVE: CASE EVENT DATE: 20231001
